FAERS Safety Report 6282547-9 (Version None)
Quarter: 2009Q3

REPORT INFORMATION
  Report Type: 
  Country: None (occurrence: None)
  Receive Date: 20090724
  Receipt Date: 20090710
  Transmission Date: 20100115
  Serious: Yes (Hospitalization, Other)
  Sender: FDA-Public Use
  Company Number: US-BAYER-200912156BCC

PATIENT
  Age: 60 Year
  Sex: Male
  Weight: 76 kg

DRUGS (2)
  1. ALKA SELTZER PLUS NIGHT TIME EFFERVESCENT [Suspect]
     Indication: COUGH
     Dosage: TOTAL DAILY DOSE: 2 DF
     Route: 048
     Dates: start: 20090709
  2. METOCLOPRAMIDE [Concomitant]
     Indication: DRUG USE FOR UNKNOWN INDICATION
     Route: 065

REACTIONS (5)
  - BLOOD PRESSURE INCREASED [None]
  - CARDIAC DISORDER [None]
  - CARDIAC ENZYMES INCREASED [None]
  - DYSPNOEA [None]
  - MYOCARDIAL INFARCTION [None]
